FAERS Safety Report 14382245 (Version 5)
Quarter: 2019Q2

REPORT INFORMATION
  Report Type: Report from Study
  Country: FR (occurrence: FR)
  Receive Date: 20180112
  Receipt Date: 20190515
  Transmission Date: 20190711
  Serious: Yes (Death, Hospitalization, Other)
  Sender: FDA-Public Use
  Company Number: FR-PFIZER INC-2018013152

PATIENT
  Age: 52 Year
  Sex: Male

DRUGS (15)
  1. GEMCITABINE HYDROCHLORIDE. [Suspect]
     Active Substance: GEMCITABINE HYDROCHLORIDE
     Indication: LUNG NEOPLASM MALIGNANT
     Dosage: 1939 MG, CYCLIC D1, D8, D21
     Route: 042
     Dates: start: 20170706
  2. PRIMPERAN [Concomitant]
     Active Substance: METOCLOPRAMIDE HYDROCHLORIDE
     Dosage: 10 MG: 2 TABLETS IF NAUSEA (MAXIMUM 6 PER DAY)
  3. GAVISCON /00237601/ [Concomitant]
     Active Substance: ALUMINUM HYDROXIDE\MAGNESIUM CARBONATE
     Dosage: 1 DF, 3X/DAY (1 SACHET IN THE MORNING, AT NOON AND IN THE EVENING)
  4. NIVOLUMAB [Suspect]
     Active Substance: NIVOLUMAB
     Indication: LUNG NEOPLASM MALIGNANT
     Dosage: 190 MG, EVERY 2 WEEKS
     Route: 042
     Dates: start: 20170130, end: 20170313
  5. ZOPHREN /00955301/ [Concomitant]
     Active Substance: ONDANSETRON
     Dosage: 8 MG, AS NEEDED 8 MG IN THE MORNING AND IN THE EVENING IF PERSISTANCE OF NAUSEA
  6. DUROGESIC [Concomitant]
     Active Substance: FENTANYL
     Dosage: 75 ?G, UNK
  7. DUPHALAC [Concomitant]
     Active Substance: LACTULOSE
     Dosage: 1 DF, 3X/DAY AS NEEDED 3 SACHETS PER DAY IF CONSTIPATION
  8. OXYCONTIN [Concomitant]
     Active Substance: OXYCODONE HYDROCHLORIDE
     Dosage: 100 MG, 2X/DAY AT 8AM AND 8PM
  9. TAXOTERE [Suspect]
     Active Substance: DOCETAXEL
     Indication: LUNG NEOPLASM MALIGNANT
     Dosage: 130 MG, EVERY 3 WEEKS
     Route: 042
     Dates: start: 20170403, end: 20170424
  10. LANSOYL [Concomitant]
     Active Substance: MINERAL OIL
     Dosage: UNK UNK, AS NEEDED IF CONSTIPATION
  11. DOLIPRANE [Concomitant]
     Active Substance: ACETAMINOPHEN
     Dosage: UNK UNK, AS NEEDED
  12. INEXIUM /01479302/ [Concomitant]
     Active Substance: ESOMEPRAZOLE MAGNESIUM
     Dosage: 40 MG, 1X/DAY IN THE EVENING
  13. ACTISKENAN [Concomitant]
     Active Substance: MORPHINE SULFATE
     Dosage: 20 MG, AS NEEDED
  14. SKENAN [Concomitant]
     Active Substance: MORPHINE SULFATE
     Dosage: 10 MG, UNK
  15. OXYNORM [Concomitant]
     Active Substance: OXYCODONE HYDROCHLORIDE
     Dosage: 20 MG, AS NEEDED EVERY 4 HOURS IF PAIN

REACTIONS (11)
  - Vomiting [Unknown]
  - Neoplasm progression [Fatal]
  - Asthenia [Unknown]
  - General physical health deterioration [Fatal]
  - Nausea [Unknown]
  - Pain [Unknown]
  - Dysphagia [Unknown]
  - Chest pain [Not Recovered/Not Resolved]
  - Malnutrition [Unknown]
  - Weight decreased [Unknown]
  - Decreased appetite [Unknown]

NARRATIVE: CASE EVENT DATE: 20170320
